FAERS Safety Report 19829508 (Version 9)
Quarter: 2021Q4

REPORT INFORMATION
  Report Type: Report from Study
  Country: GT (occurrence: None)
  Receive Date: 20210914
  Receipt Date: 20211213
  Transmission Date: 20220304
  Serious: Yes (Hospitalization)
  Sender: FDA-Public Use
  Company Number: GT-EISAI MEDICAL RESEARCH-EC-2021-099353

PATIENT
  Age: 51 Year
  Sex: Female
  Weight: 45.36 kg

DRUGS (14)
  1. LENVATINIB [Suspect]
     Active Substance: LENVATINIB
     Indication: Adenocarcinoma gastric
     Dosage: FLUCTUATED DOSAGE STARTING AT 8 MG
     Route: 048
     Dates: start: 20210818, end: 20210829
  2. LENVATINIB [Suspect]
     Active Substance: LENVATINIB
     Indication: Oesophageal adenocarcinoma
     Route: 048
     Dates: start: 20210830, end: 20210831
  3. LENVATINIB [Suspect]
     Active Substance: LENVATINIB
     Dosage: FLUCTUATED DOSAGE
     Route: 048
     Dates: start: 20210923
  4. PEMBROLIZUMAB [Suspect]
     Active Substance: PEMBROLIZUMAB
     Indication: Adenocarcinoma gastric
     Route: 041
     Dates: start: 20210818, end: 20210818
  5. PEMBROLIZUMAB [Suspect]
     Active Substance: PEMBROLIZUMAB
     Indication: Oesophageal adenocarcinoma
     Route: 041
     Dates: start: 20211013
  6. OXALIPLATIN [Suspect]
     Active Substance: OXALIPLATIN
     Indication: Adenocarcinoma gastric
     Route: 042
     Dates: start: 20210818, end: 20210818
  7. OXALIPLATIN [Suspect]
     Active Substance: OXALIPLATIN
     Indication: Oesophageal adenocarcinoma
     Route: 042
     Dates: start: 20210923
  8. CAPECITABINE [Suspect]
     Active Substance: CAPECITABINE
     Indication: Adenocarcinoma gastric
     Dosage: FOR 14 DAYS Q3W FOR 4 CYCLES
     Route: 048
     Dates: start: 20210818, end: 20210830
  9. CAPECITABINE [Suspect]
     Active Substance: CAPECITABINE
     Indication: Oesophageal adenocarcinoma
     Dosage: FOR 14 DAYS Q3W FOR 4 CYCLES
     Route: 048
     Dates: start: 20210923
  10. GRANISETRON [Concomitant]
     Active Substance: GRANISETRON
     Dates: start: 20210826, end: 20210826
  11. ONDANSETRON [Concomitant]
     Active Substance: ONDANSETRON
     Dates: start: 20210826, end: 20210905
  12. IRBESARTAN [Concomitant]
     Active Substance: IRBESARTAN
     Dates: start: 20210826, end: 20210905
  13. SACCHAROMYCES CEREVISIAE [Concomitant]
     Active Substance: SACCHAROMYCES CEREVISIAE
     Dates: start: 20210818, end: 20210823
  14. ALPRAZOLAM [Concomitant]
     Active Substance: ALPRAZOLAM
     Dates: start: 20210826, end: 20210910

REACTIONS (1)
  - Diarrhoea [Recovered/Resolved]

NARRATIVE: CASE EVENT DATE: 20210831
